FAERS Safety Report 22156986 (Version 1)
Quarter: 2023Q1

REPORT INFORMATION
  Report Type: Spontaneous
  Country: PT (occurrence: None)
  Receive Date: 20230330
  Receipt Date: 20230330
  Transmission Date: 20230417
  Serious: Yes (Other)
  Sender: FDA-Public Use
  Company Number: 2023A067674

PATIENT
  Age: 45 Year
  Sex: Male

DRUGS (6)
  1. BUDESONIDE [Interacting]
     Active Substance: BUDESONIDE
     Indication: Asthma
     Route: 055
  2. COBICISTAT\DARUNAVIR ETHANOLATE [Interacting]
     Active Substance: COBICISTAT\DARUNAVIR ETHANOLATE
     Indication: HIV infection
     Dosage: 800/150 MG/PER DAY
     Dates: start: 2019
  3. COBICISTAT\DARUNAVIR ETHANOLATE [Interacting]
     Active Substance: COBICISTAT\DARUNAVIR ETHANOLATE
     Indication: Hepatitis C
     Dosage: 800/150 MG/PER DAY
     Dates: start: 2019
  4. FLUTICASONE PROPIONATE [Interacting]
     Active Substance: FLUTICASONE PROPIONATE
     Dosage: 92 UG (PER DAY)
  5. RALTEGRAVIR [Concomitant]
     Active Substance: RALTEGRAVIR
     Indication: Hepatitis C
     Dates: start: 2019
  6. RALTEGRAVIR [Concomitant]
     Active Substance: RALTEGRAVIR
     Indication: HIV infection
     Dates: start: 2019

REACTIONS (2)
  - Cushing^s syndrome [Recovering/Resolving]
  - Drug interaction [Unknown]
